FAERS Safety Report 18496657 (Version 2)
Quarter: 2020Q4

REPORT INFORMATION
  Report Type: Report from Study
  Country: IT (occurrence: IT)
  Receive Date: 20201112
  Receipt Date: 20201116
  Transmission Date: 20210114
  Serious: Yes (Death, Other)
  Sender: FDA-Public Use
  Company Number: IT-PFIZER INC-2020446218

PATIENT

DRUGS (4)
  1. METHOTREXATE. [Suspect]
     Active Substance: METHOTREXATE
     Indication: SQUAMOUS CELL CARCINOMA OF HEAD AND NECK
     Dosage: 40 MG/M2, CYCLIC, ON DAYS 1 AND 15
     Route: 042
  2. MANNITOL. [Concomitant]
     Active Substance: MANNITOL
     Indication: DIURETIC THERAPY
  3. CISPLATIN. [Suspect]
     Active Substance: CISPLATIN
     Indication: SQUAMOUS CELL CARCINOMA OF HEAD AND NECK
     Dosage: 50 MG/M2, CYCLIC, (DAY 4)
     Route: 042
  4. BLEOMYCIN [Suspect]
     Active Substance: BLEOMYCIN SULFATE
     Indication: SQUAMOUS CELL CARCINOMA OF HEAD AND NECK
     Dosage: 10 MG/M2, CYCLIC, (ON DAYS 1, 8 AND 15)
     Route: 042

REACTIONS (2)
  - Pneumonia [Fatal]
  - Myelosuppression [Unknown]
